FAERS Safety Report 4904960-1 (Version None)
Quarter: 2006Q1

REPORT INFORMATION
  Report Type: 
  Country: None (occurrence: None)
  Receive Date: 20060208
  Receipt Date: 20051028
  Transmission Date: 20060701
  Serious: No
  Sender: FDA-Public Use
  Company Number: US-GLAXOSMITHKLINE-A0580122A

PATIENT
  Age: 40 Year
  Sex: Female

DRUGS (5)
  1. PAXIL [Suspect]
     Indication: PANIC DISORDER
     Dosage: 20MG PER DAY
     Route: 048
     Dates: start: 20010101, end: 20051001
  2. WELLBUTRIN SR [Suspect]
     Indication: DEPRESSION
     Dosage: 100MG TWICE PER DAY
     Route: 048
     Dates: start: 20051021, end: 20051024
  3. KLONOPIN [Concomitant]
  4. OXYCONTIN [Concomitant]
  5. ATENOLOL [Concomitant]

REACTIONS (3)
  - CRYING [None]
  - DEPRESSION [None]
  - NIGHTMARE [None]
